FAERS Safety Report 21146520 (Version 1)
Quarter: 2022Q3

REPORT INFORMATION
  Report Type: Spontaneous
  Country: DE (occurrence: DE)
  Receive Date: 20220729
  Receipt Date: 20220729
  Transmission Date: 20221026
  Serious: No
  Sender: FDA-Public Use
  Company Number: DE-ALKEM LABORATORIES LIMITED-DE-ALKEM-2021-04639

PATIENT
  Sex: Male

DRUGS (3)
  1. CEFUROXIME AXETIL [Suspect]
     Active Substance: CEFUROXIME AXETIL
     Indication: Antibiotic prophylaxis
     Dosage: 250 MILLIGRAM, QD
     Route: 048
     Dates: start: 20210701
  2. Calmvera [Concomitant]
     Indication: Restlessness
     Dosage: UNK (AS NECESSARY)
     Route: 048
  3. HOMVIOTENSIN [Concomitant]
     Indication: Blood pressure fluctuation
     Dosage: UNK
     Route: 048

REACTIONS (1)
  - Blood pressure decreased [Not Recovered/Not Resolved]

NARRATIVE: CASE EVENT DATE: 20210701
